FAERS Safety Report 6530258-4 (Version None)
Quarter: 2009Q4

REPORT INFORMATION
  Report Type: 
  Country: None (occurrence: None)
  Receive Date: 20091231
  Receipt Date: 20091217
  Transmission Date: 20100525
  Serious: Yes (Hospitalization, Other)
  Sender: FDA-Public Use
  Company Number: VAL_00344_2009

PATIENT
  Age: 26 Year
  Sex: Male
  Weight: 87 kg

DRUGS (6)
  1. CARBAMAZEPINE [Suspect]
     Indication: BIPOLAR DISORDER
     Dosage: (200 MG 3X/WEEK ORAL)
     Route: 048
  2. TOPIRAMATE [Concomitant]
  3. OLANZAPINE [Concomitant]
  4. QUETIAPINE [Concomitant]
  5. DESMOPRESSIN ACETATE [Concomitant]
  6. GUANFACINE HYDROCHLORIDE [Concomitant]

REACTIONS (7)
  - AGGRESSION [None]
  - AGITATION [None]
  - BLUNTED AFFECT [None]
  - ENCEPHALOPATHY [None]
  - HYPERAMMONAEMIA [None]
  - JUDGEMENT IMPAIRED [None]
  - PHYSICAL ASSAULT [None]
